FAERS Safety Report 6249619-6 (Version None)
Quarter: 2009Q2

REPORT INFORMATION
  Report Type: 
  Country: None (occurrence: None)
  Receive Date: 20090629
  Receipt Date: 20090626
  Transmission Date: 20091009
  Serious: Yes (Hospitalization, Other)
  Sender: FDA-Public Use
  Company Number: US-ELI_LILLY_AND_COMPANY-US200906006316

PATIENT
  Sex: Female

DRUGS (4)
  1. HUMALOG [Suspect]
     Dosage: UNK, UNK
  2. LANTUS [Concomitant]
     Indication: TYPE 2 DIABETES MELLITUS
     Dosage: 80 U, UNK
  3. LANTUS [Concomitant]
     Dosage: 50 U, UNK
  4. ANTIBIOTICS [Concomitant]
     Indication: GASTROINTESTINAL INFECTION

REACTIONS (10)
  - BLOOD GLUCOSE INCREASED [None]
  - COLON INJURY [None]
  - EXPIRED DRUG ADMINISTERED [None]
  - GASTRIC BANDING [None]
  - GASTROINTESTINAL INFECTION [None]
  - HYSTERECTOMY [None]
  - MALAISE [None]
  - POST PROCEDURAL COMPLICATION [None]
  - PULMONARY EMBOLISM [None]
  - WEIGHT LOSS POOR [None]
